FAERS Safety Report 16656390 (Version 1)
Quarter: 2019Q3

REPORT INFORMATION
  Report Type: Report from Study
  Country: FR (occurrence: FR)
  Receive Date: 20190801
  Receipt Date: 20190801
  Transmission Date: 20191004
  Serious: Yes (Other)
  Sender: FDA-Public Use
  Company Number: FR-PACIRA-201400070

PATIENT
  Age: 59 Year
  Sex: Female

DRUGS (3)
  1. DEPOCYT [Suspect]
     Active Substance: CYTARABINE
     Indication: METASTASES TO MENINGES
  2. DEPOCYT [Suspect]
     Active Substance: CYTARABINE
     Indication: METASTASES TO MENINGES
     Dosage: 50 MG EVERY 14 DAYS (+/-2) FOR 5 CYCLES, THEN EVERY 28 DAYS UNTIL PROGRESSION (FREQ PER PROTOCOL)
     Route: 037
     Dates: start: 20120330, end: 20120515
  3. VINORELBINE [Suspect]
     Active Substance: VINORELBINE TARTRATE
     Indication: NEOPLASM MALIGNANT
     Dosage: 100 MG, FREQUENCY UNKNOWN, FREQUENCY : UNK
     Route: 048
     Dates: start: 20120409, end: 20120502

REACTIONS (2)
  - Febrile neutropenia [Unknown]
  - Thrombocytopenia [Recovered/Resolved]

NARRATIVE: CASE EVENT DATE: 20120506
